FAERS Safety Report 6832230-3 (Version None)
Quarter: 2010Q2

REPORT INFORMATION
  Report Type: 
  Country: None (occurrence: None)
  Receive Date: 20100630
  Receipt Date: 20100429
  Transmission Date: 20101027
  Serious: Yes (Death, Hospitalization)
  Sender: FDA-Public Use
  Company Number: WSDF_00811

PATIENT
  Sex: Male
  Weight: 121.1104 kg

DRUGS (13)
  1. WINRHO SDF LIQUID [Suspect]
     Indication: IDIOPATHIC THROMBOCYTOPENIC PURPURA
     Dosage: (40 ?G/KG QD INTRAVENOUS (NOT OTHERWISE SPECIFIED))
     Route: 042
     Dates: start: 20090403, end: 20090403
  2. WINRHO SDF LIQUID [Suspect]
  3. ASPIRIN [Concomitant]
  4. ADVICOR [Concomitant]
  5. LASIX [Concomitant]
  6. FLOMAX [Concomitant]
  7. FERROUS SULFATE [Concomitant]
  8. ACCUPRIL [Concomitant]
  9. TOPROL-XL [Concomitant]
  10. ALDACTONE [Concomitant]
  11. NEXIUM [Concomitant]
  12. NOVOLOG [Concomitant]
  13. VIDAZA [Concomitant]

REACTIONS (8)
  - ABDOMINAL PAIN [None]
  - ANAEMIA HAEMOLYTIC AUTOIMMUNE [None]
  - CHOLELITHIASIS [None]
  - MYOCARDIAL ISCHAEMIA [None]
  - NAUSEA [None]
  - PYREXIA [None]
  - SINUS TACHYCARDIA [None]
  - SPLENOMEGALY [None]
